FAERS Safety Report 9354347 (Version 5)
Quarter: 2015Q1

REPORT INFORMATION
  Report Type: Spontaneous
  Country: FR (occurrence: FR)
  Receive Date: 20130618
  Receipt Date: 20150130
  Transmission Date: 20150721
  Serious: Yes (Hospitalization, Other)
  Sender: FDA-Public Use
  Company Number: FR-PFIZER INC-2013180034

PATIENT
  Age: 64 Year
  Sex: Female

DRUGS (5)
  1. PAMIDRONATE DISODIUM. [Suspect]
     Active Substance: PAMIDRONATE DISODIUM
     Dosage: 1 DF, SINGLE
     Route: 042
     Dates: start: 20130410, end: 20130410
  2. VISIPAQUE [Suspect]
     Active Substance: IODIXANOL
     Dosage: 1 DF, SINGLE
     Route: 042
     Dates: start: 20130311, end: 20130311
  3. FEMARA [Suspect]
     Active Substance: LETROZOLE
     Dosage: UNK
     Route: 048
     Dates: end: 20130422
  4. TRIATEC [Suspect]
     Active Substance: RAMIPRIL
     Dosage: UNK
     Route: 048
     Dates: end: 20130426
  5. METFORMIN HCL [Suspect]
     Active Substance: METFORMIN HYDROCHLORIDE
     Dosage: UNK
     Route: 048
     Dates: end: 20130425

REACTIONS (12)
  - General physical health deterioration [Recovered/Resolved]
  - Hypotension [Recovered/Resolved]
  - Condition aggravated [Recovered/Resolved]
  - C-reactive protein increased [Recovered/Resolved]
  - Drug reaction with eosinophilia and systemic symptoms [Recovered/Resolved]
  - Atrial fibrillation [Recovered/Resolved]
  - Hepatocellular injury [Recovered/Resolved]
  - Neutrophil count increased [Recovered/Resolved]
  - Oliguria [Recovered/Resolved]
  - Hyperthermia [Recovered/Resolved]
  - Blood creatinine increased [Recovered/Resolved]
  - Epstein-Barr virus infection [Unknown]

NARRATIVE: CASE EVENT DATE: 20130417
